FAERS Safety Report 6423090-3 (Version None)
Quarter: 2009Q4

REPORT INFORMATION
  Report Type: 
  Country: None (occurrence: None)
  Receive Date: 20091028
  Receipt Date: 20091012
  Transmission Date: 20100525
  Serious: Yes (Hospitalization)
  Sender: FDA-Public Use
  Company Number: 1000009470

PATIENT
  Age: 26 Year
  Sex: Male
  Weight: 87 kg

DRUGS (6)
  1. CARBAMAZEPINE [Suspect]
     Indication: BIPOLAR DISORDER
     Dosage: 600 MG (200 MG, 3 IN 1 D), ORAL
     Route: 048
  2. TOPIRAMATE [Concomitant]
  3. OLANZAPINE [Concomitant]
  4. QUETIAPINE [Concomitant]
  5. GUANFACINE HYDROCHLORIDE [Concomitant]
  6. DESMOPRESSIN ACETATE [Concomitant]

REACTIONS (1)
  - HYPERAMMONAEMIA [None]
